FAERS Safety Report 4590878-3 (Version None)
Quarter: 2005Q1

REPORT INFORMATION
  Report Type: 
  Country: None (occurrence: None)
  Receive Date: 20050225
  Receipt Date: 20040610
  Transmission Date: 20050727
  Serious: No
  Sender: FDA-Public Use
  Company Number: US-GLAXOSMITHKLINE-A0514165A

PATIENT
  Age: 29 Year
  Sex: Female
  Weight: 63.6 kg

DRUGS (5)
  1. ZIAGEN [Suspect]
     Indication: HIV INFECTION
     Dosage: 300MG TWICE PER DAY
     Route: 048
     Dates: start: 20040303, end: 20040319
  2. VIREAD [Concomitant]
     Indication: HIV INFECTION
     Route: 065
     Dates: start: 20040303, end: 20040319
  3. KALETRA [Concomitant]
     Indication: HIV INFECTION
     Route: 065
     Dates: start: 20040303, end: 20040319
  4. MEPRON [Concomitant]
     Indication: DRUG USE FOR UNKNOWN INDICATION
     Dosage: 1TSP TWICE PER DAY
     Route: 048
     Dates: start: 20030101
  5. PAXIL [Concomitant]
     Indication: DEPRESSION
     Dosage: 20MG PER DAY
     Route: 048
     Dates: start: 20030101

REACTIONS (8)
  - ASTHENIA [None]
  - DIARRHOEA [None]
  - FATIGUE [None]
  - HYPERSENSITIVITY [None]
  - LYMPHADENOPATHY [None]
  - NAUSEA [None]
  - PYREXIA [None]
  - VOMITING [None]
